FAERS Safety Report 23830399 (Version 2)
Quarter: 2024Q3

REPORT INFORMATION
  Report Type: Spontaneous
  Country: CA (occurrence: CA)
  Receive Date: 20240508
  Receipt Date: 20240920
  Transmission Date: 20241017
  Serious: Yes (Hospitalization)
  Sender: AMERICAN REGENT
  Company Number: CA-AMERICAN REGENT INC-2024001731

PATIENT
  Age: 44 Year
  Sex: Female

DRUGS (2)
  1. VENOFER [Suspect]
     Active Substance: IRON SUCROSE
     Indication: Blood iron decreased
     Dosage: 300 MILLIGRAM/250 MILLILITERS OF NORMAL SALINE 0.9%
     Route: 042
     Dates: start: 20240125, end: 20240125
  2. CAFFEINE [Concomitant]
     Active Substance: CAFFEINE
     Indication: Product used for unknown indication
     Dosage: UNK
     Route: 065

REACTIONS (7)
  - Pain [Unknown]
  - Pallor [Unknown]
  - Chills [Unknown]
  - Tremor [Unknown]
  - Asthenia [Unknown]
  - Blood pressure decreased [Unknown]
  - Vomiting [Unknown]

NARRATIVE: CASE EVENT DATE: 20240125
